FAERS Safety Report 16800891 (Version 1)
Quarter: 2019Q3

REPORT INFORMATION
  Report Type: Spontaneous
  Country: US (occurrence: US)
  Receive Date: 20190912
  Receipt Date: 20190912
  Transmission Date: 20191005
  Serious: No
  Sender: FDA-Public Use
  Company Number: US-ASTELLAS-2019US004109

PATIENT
  Age: 84 Year
  Sex: Male

DRUGS (2)
  1. LUPRON [Concomitant]
     Active Substance: LEUPROLIDE ACETATE
     Indication: PROSTATE CANCER
     Dosage: UNK UNK, UNKNOWN FREQ.
     Route: 065
  2. XTANDI [Suspect]
     Active Substance: ENZALUTAMIDE
     Indication: PROSTATE CANCER
     Dosage: 160 MG, ONCE DAILY (4 CAPSULES ONCE DAILY)
     Route: 065
     Dates: start: 201809

REACTIONS (6)
  - Dyspepsia [Unknown]
  - Dysphonia [Unknown]
  - Hypersensitivity [Unknown]
  - Dizziness postural [Unknown]
  - Oropharyngeal pain [Unknown]
  - Fatigue [Unknown]
